FAERS Safety Report 16010931 (Version 6)
Quarter: 2020Q1

REPORT INFORMATION
  Report Type: Spontaneous
  Country: US (occurrence: US)
  Receive Date: 20190227
  Receipt Date: 20200306
  Transmission Date: 20200409
  Serious: Yes (Other)
  Sender: FDA-Public Use
  Company Number: US-GLAXOSMITHKLINE-US2019GSK034568

PATIENT
  Sex: Male

DRUGS (2)
  1. PREVACID [Suspect]
     Active Substance: LANSOPRAZOLE
     Indication: GASTROOESOPHAGEAL REFLUX DISEASE
     Dosage: UNK
     Route: 065
  2. PREVACID [Suspect]
     Active Substance: LANSOPRAZOLE
     Indication: PRODUCT USED FOR UNKNOWN INDICATION
     Dosage: UNK
     Route: 065

REACTIONS (8)
  - Haemodialysis [Recovered/Resolved]
  - Renal failure [Unknown]
  - Rebound acid hypersecretion [Unknown]
  - Cardiac arrest [Recovered/Resolved]
  - Tubulointerstitial nephritis [Recovered/Resolved]
  - Renal injury [Unknown]
  - Hyperchlorhydria [Unknown]
  - Renal impairment [Unknown]
